FAERS Safety Report 6475138-8 (Version None)
Quarter: 2009Q4

REPORT INFORMATION
  Report Type: 
  Country: None (occurrence: None)
  Receive Date: 20091204
  Receipt Date: 20090721
  Transmission Date: 20100525
  Serious: Yes (Hospitalization)
  Sender: FDA-Public Use
  Company Number: US-ELI_LILLY_AND_COMPANY-US200903004569

PATIENT
  Age: 46 Year
  Sex: Female
  Weight: 92.517 kg

DRUGS (9)
  1. CYMBALTA [Suspect]
     Indication: FIBROMYALGIA
     Dosage: 60 MG, DAILY (1/D)
     Dates: start: 20080101
  2. CLARITIN-D [Concomitant]
  3. PRILOSEC [Concomitant]
     Indication: GASTROOESOPHAGEAL REFLUX DISEASE
  4. REQUIP [Concomitant]
  5. LOVASTIN [Concomitant]
     Indication: DYSLIPIDAEMIA
  6. ESTRADIOL [Concomitant]
  7. SKELAXIN [Concomitant]
  8. RESTORIL [Concomitant]
  9. LISINOPRIL [Concomitant]
     Indication: HYPERTENSION

REACTIONS (1)
  - THYROID CANCER [None]
